FAERS Safety Report 10152035 (Version 1)
Quarter: 2014Q2

REPORT INFORMATION
  Report Type: Spontaneous
  Country: TR (occurrence: TR)
  Receive Date: 20140505
  Receipt Date: 20140505
  Transmission Date: 20141212
  Serious: Yes (Hospitalization, Other)
  Sender: FDA-Public Use
  Company Number: TR-ROCHE-1390454

PATIENT
  Age: 20 Year
  Sex: Male

DRUGS (4)
  1. BEVACIZUMAB [Suspect]
     Indication: COLON CANCER
     Route: 065
  2. OXALIPLATIN [Suspect]
     Indication: COLON CANCER
     Route: 065
  3. 5-FU [Suspect]
     Indication: COLON CANCER
     Route: 065
  4. FOLINIC ACID [Suspect]
     Indication: COLON CANCER
     Route: 065

REACTIONS (2)
  - Metabolic acidosis [Recovering/Resolving]
  - Diarrhoea [Unknown]
